FAERS Safety Report 4815869-6 (Version None)
Quarter: 2005Q4

REPORT INFORMATION
  Report Type: 
  Country: None (occurrence: None)
  Receive Date: 20051031
  Receipt Date: 20050908
  Transmission Date: 20060501
  Serious: Yes (Hospitalization)
  Sender: FDA-Public Use
  Company Number: US-MERCK-0509USA01070

PATIENT
  Age: 58 Year
  Sex: Female

DRUGS (5)
  1. VIOXX [Suspect]
     Route: 048
     Dates: start: 20030201, end: 20040901
  2. ASPIRIN [Concomitant]
     Route: 065
  3. NSI FISH OIL PLUS COQ10 [Concomitant]
     Route: 065
  4. PAXIL [Concomitant]
     Route: 065
  5. [THERAPY UNSPECIFIED] [Concomitant]
     Route: 065

REACTIONS (10)
  - ACUTE MYOCARDIAL INFARCTION [None]
  - ANGINA UNSTABLE [None]
  - ANXIETY [None]
  - BLOOD TRIGLYCERIDES INCREASED [None]
  - CORONARY ARTERY THROMBOSIS [None]
  - DEPRESSION [None]
  - DISCOMFORT [None]
  - HYPERTENSION [None]
  - JAW DISORDER [None]
  - NAUSEA [None]
